FAERS Safety Report 9914230 (Version 1)
Quarter: 2014Q1

REPORT INFORMATION
  Report Type: Spontaneous
  Country: US (occurrence: None)
  Receive Date: 20140219
  Receipt Date: 20140219
  Transmission Date: 20141002
  Serious: No
  Sender: FDA-Public Use
  Company Number: None

PATIENT
  Age: 62 Week
  Sex: Female
  Weight: 61.24 kg

DRUGS (1)
  1. ALEVE 220 MG BAYER HEALTH CARE [Suspect]
     Indication: ARTHRITIS
     Dates: start: 20140105, end: 20140217

REACTIONS (3)
  - Rash [None]
  - Swelling [None]
  - Incorrect dose administered [None]
